FAERS Safety Report 17000186 (Version 1)
Quarter: 2019Q4

REPORT INFORMATION
  Report Type: Spontaneous
  Country: US (occurrence: US)
  Receive Date: 20191106
  Receipt Date: 20191106
  Transmission Date: 20200122
  Serious: Yes (Life-Threatening, Hospitalization)
  Sender: FDA-Public Use
  Company Number: US-MYLANLABS-2019M1106038

PATIENT
  Age: 25 Year
  Sex: Male

DRUGS (10)
  1. EPINEPHRINE. [Suspect]
     Active Substance: EPINEPHRINE
     Indication: SHOCK
     Dosage: HIGH DOSES
     Route: 042
  2. METFORMIN [Suspect]
     Active Substance: METFORMIN HYDROCHLORIDE
     Indication: PRODUCT USED FOR UNKNOWN INDICATION
     Dosage: UNK
     Route: 048
  3. TRAZODONE [Suspect]
     Active Substance: TRAZODONE HYDROCHLORIDE
     Indication: PRODUCT USED FOR UNKNOWN INDICATION
     Dosage: UNK
     Route: 048
  4. NOREPINEPHRINE. [Suspect]
     Active Substance: NOREPINEPHRINE
     Indication: SHOCK
     Dosage: HIGH DOSES
     Route: 042
  5. RISPERIDONE. [Suspect]
     Active Substance: RISPERIDONE
     Indication: PRODUCT USED FOR UNKNOWN INDICATION
     Dosage: UNK
     Route: 048
  6. SODIUM ACETATE. [Suspect]
     Active Substance: SODIUM ACETATE
     Indication: METABOLIC ACIDOSIS
  7. VASOPRESSIN. [Suspect]
     Active Substance: VASOPRESSIN
     Indication: SHOCK
     Dosage: HIGH DOSES
     Route: 042
  8. SODIUM ACETATE. [Suspect]
     Active Substance: SODIUM ACETATE
     Indication: SHOCK
     Dosage: UNK
     Route: 042
  9. VALPROIC ACID. [Suspect]
     Active Substance: VALPROIC ACID
     Indication: PRODUCT USED FOR UNKNOWN INDICATION
     Dosage: UNK
     Route: 048
  10. PHENYLEPHRINE [Suspect]
     Active Substance: PHENYLEPHRINE HYDROCHLORIDE
     Indication: SHOCK
     Dosage: HIGH DOSES
     Route: 042

REACTIONS (6)
  - Hypotension [Unknown]
  - Shock [Recovered/Resolved]
  - Drug ineffective [Unknown]
  - Mental status changes [Unknown]
  - Intentional overdose [Unknown]
  - Metabolic acidosis [Unknown]
